FAERS Safety Report 8802642 (Version 2)
Quarter: 2014Q3

REPORT INFORMATION
  Report Type: Report from Study
  Country: AU (occurrence: AU)
  Receive Date: 20120921
  Receipt Date: 20140911
  Transmission Date: 20150326
  Serious: Yes (Other)
  Sender: FDA-Public Use
  Company Number: AU-ROCHE-1122518

PATIENT
  Sex: Female

DRUGS (1)
  1. HERCEPTIN [Suspect]
     Active Substance: TRASTUZUMAB
     Indication: GASTRIC CANCER
     Route: 065

REACTIONS (5)
  - Lymphadenopathy [Unknown]
  - Off label use [Unknown]
  - Computerised tomogram abnormal [Unknown]
  - Lymphadenopathy [Not Recovered/Not Resolved]
  - Lymphadenopathy mediastinal [Unknown]
